FAERS Safety Report 8747257 (Version 4)
Quarter: 2013Q1

REPORT INFORMATION
  Report Type: Report from Study
  Country: US (occurrence: US)
  Receive Date: 20120827
  Receipt Date: 20130124
  Transmission Date: 20140127
  Serious: Yes (Hospitalization)
  Sender: FDA-Public Use
  Company Number: US-ACTELION-A-NJ2012-70410

PATIENT
  Age: 73 Year
  Sex: Male

DRUGS (3)
  1. TRACLEER [Suspect]
     Indication: PULMONARY HYPERTENSION
     Dosage: UNK
     Route: 048
  2. SILDENAFIL [Concomitant]
  3. ASPIRIN [Concomitant]

REACTIONS (5)
  - Pulmonary thrombosis [Unknown]
  - Cardiac failure [Unknown]
  - Fluid retention [Unknown]
  - Heart rate decreased [Unknown]
  - Cardiac failure congestive [None]
